FAERS Safety Report 7179733-2 (Version None)
Quarter: 2010Q4

REPORT INFORMATION
  Report Type: 
  Country: None (occurrence: None)
  Receive Date: 20101221
  Receipt Date: 20101210
  Transmission Date: 20110411
  Serious: Yes (Hospitalization)
  Sender: FDA-Public Use
  Company Number: DE-ROCHE-748502

PATIENT
  Sex: Male
  Weight: 74 kg

DRUGS (6)
  1. BEVACIZUMAB [Suspect]
     Route: 042
     Dates: start: 20090818
  2. DIGITOXIN TAB [Suspect]
     Route: 048
     Dates: start: 19900101
  3. CAPECITABINE [Concomitant]
     Route: 048
     Dates: start: 20090818
  4. RAMIPRIL [Concomitant]
     Indication: HYPERTENSION
     Dates: start: 20090908
  5. TAMSULOSIN [Concomitant]
     Indication: BENIGN PROSTATIC HYPERPLASIA
  6. FONDAPARINUX SODIUM [Concomitant]
     Indication: PROPHYLAXIS

REACTIONS (2)
  - ABDOMINAL PAIN [None]
  - GASTROINTESTINAL DISORDER [None]
